FAERS Safety Report 11804683 (Version 2)
Quarter: 2021Q3

REPORT INFORMATION
  Report Type: Spontaneous
  Country: DE (occurrence: DE)
  Receive Date: 20151205
  Receipt Date: 20210818
  Transmission Date: 20211014
  Serious: Yes (Other)
  Sender: FDA-Public Use
  Company Number: DE-AUROBINDO-AUR-APL-2015-10946

PATIENT
  Age: 38 Year
  Sex: Female
  Weight: 59 kg

DRUGS (6)
  1. VENLAFAXINE [Suspect]
     Active Substance: VENLAFAXINE HYDROCHLORIDE
     Dosage: 150 MG, DAILY
     Route: 048
  2. CYTOTEC [Concomitant]
     Active Substance: MISOPROSTOL
     Indication: LABOUR INDUCTION
     Dosage: 400 ?G, UNK
     Route: 048
     Dates: start: 20150724, end: 20150725
  3. PROTAPHANE [Concomitant]
     Active Substance: INSULIN HUMAN
     Indication: GESTATIONAL DIABETES
     Dosage: UNK
     Route: 058
     Dates: start: 20150603, end: 20150625
  4. ACTRAPID [Concomitant]
     Active Substance: INSULIN HUMAN
     Indication: GESTATIONAL DIABETES
     Dosage: UNK
     Route: 058
     Dates: start: 20150625, end: 20150725
  5. VENLAFAXINE [Suspect]
     Active Substance: VENLAFAXINE HYDROCHLORIDE
     Indication: DEPRESSION
     Dosage: 225 MG, DAILY
     Route: 048
     Dates: start: 20141030, end: 20150725
  6. FEMIBION [Concomitant]
     Indication: PROPHYLAXIS OF NEURAL TUBE DEFECT
     Dosage: UNK
     Route: 048
     Dates: start: 20141213, end: 20150725

REACTIONS (5)
  - Gestational diabetes [Recovering/Resolving]
  - Maternal exposure during delivery [Recovering/Resolving]
  - Foetal exposure during pregnancy [Unknown]
  - Exposure during pregnancy [Recovered/Resolved]
  - Foetal death [Recovered/Resolved]
